FAERS Safety Report 4653102-9 (Version None)
Quarter: 2005Q2

REPORT INFORMATION
  Report Type: 
  Country: None (occurrence: None)
  Receive Date: 20050502
  Receipt Date: 20050502
  Transmission Date: 20051028
  Serious: Yes (Other)
  Sender: FDA-Public Use
  Company Number: None

PATIENT
  Age: 34 Year
  Sex: Female

DRUGS (1)
  1. LUNESTA [Suspect]
     Dosage: 3MG AT BEDTIME
     Dates: start: 20050419, end: 20050420

REACTIONS (5)
  - DYSGEUSIA [None]
  - DYSPNOEA [None]
  - PHARYNGEAL OEDEMA [None]
  - PSYCHOMOTOR HYPERACTIVITY [None]
  - SUFFOCATION FEELING [None]
